FAERS Safety Report 4334494-7 (Version None)
Quarter: 2004Q2

REPORT INFORMATION
  Report Type: 
  Country: None (occurrence: None)
  Receive Date: 20040405
  Receipt Date: 20040324
  Transmission Date: 20050107
  Serious: Yes (Hospitalization, Other)
  Sender: FDA-Public Use
  Company Number: HQWYE105425MAR04

PATIENT
  Age: 87 Year
  Sex: Female
  Weight: 57.2 kg

DRUGS (8)
  1. PREMARIN [Suspect]
     Indication: OESTROGEN REPLACEMENT THERAPY
     Dosage: 0.625 MG DAILY, ORAL; 1.25 MG DAILY, ORAL
     Route: 048
     Dates: start: 19500101, end: 19850101
  2. PREMARIN [Suspect]
     Indication: OESTROGEN REPLACEMENT THERAPY
     Dosage: 0.625 MG DAILY, ORAL; 1.25 MG DAILY, ORAL
     Route: 048
     Dates: start: 19850101, end: 20040301
  3. ISOSORBIDE (ISOSORBIDE) [Concomitant]
  4. CLARITIN [Concomitant]
  5. METOPROLOL (METOPROLOL) [Concomitant]
  6. PLAVIX [Concomitant]
  7. ASPIRIN [Concomitant]
  8. COUMADIN [Concomitant]

REACTIONS (3)
  - CARDIOVASCULAR DISORDER [None]
  - GASTROINTESTINAL HAEMORRHAGE [None]
  - PULMONARY HYPERTENSION [None]
